FAERS Safety Report 12394097 (Version 2)
Quarter: 2016Q2

REPORT INFORMATION
  Report Type: Spontaneous
  Country: JP (occurrence: JP)
  Receive Date: 20160523
  Receipt Date: 20160531
  Transmission Date: 20160815
  Serious: Yes (Hospitalization)
  Sender: FDA-Public Use
  Company Number: JP-PFIZER INC-2016265077

PATIENT
  Age: 8 Decade
  Sex: Female
  Weight: 55 kg

DRUGS (18)
  1. OMEPRAZOLE. [Suspect]
     Active Substance: OMEPRAZOLE
     Indication: DYSPEPSIA
     Dosage: 20 MG, 1X/DAY
     Route: 048
     Dates: start: 20131225, end: 20140701
  2. ACINON [Concomitant]
     Active Substance: NIZATIDINE
     Route: 048
  3. PACLITAXEL. [Concomitant]
     Active Substance: PACLITAXEL
     Dosage: UNK
  4. DIART [Suspect]
     Active Substance: AZOSEMIDE
     Dosage: 30 MG, 1X/DAY
     Route: 048
     Dates: start: 20140404, end: 20140529
  5. CELECOX [Concomitant]
     Active Substance: CELECOXIB
     Route: 048
  6. PACLITAXEL. [Concomitant]
     Active Substance: PACLITAXEL
     Dosage: UNK UNK, WEEKLY
     Dates: start: 20131016
  7. SELTEPNON [Concomitant]
     Active Substance: TEPRENONE
     Dosage: UNK
     Route: 048
     Dates: start: 201312
  8. LYRICA [Suspect]
     Active Substance: PREGABALIN
     Indication: HYPOAESTHESIA
     Dosage: 25 MG, 1X/DAY
     Route: 048
     Dates: start: 20131018, end: 20140121
  9. DIART [Suspect]
     Active Substance: AZOSEMIDE
     Indication: OEDEMA
     Dosage: 60 MG, 1X/DAY
     Route: 048
     Dates: start: 20140305, end: 20140403
  10. VENA [Concomitant]
     Active Substance: DIPHENHYDRAMINE HYDROCHLORIDE
     Dosage: UNK
     Route: 048
     Dates: start: 201310
  11. DIART [Suspect]
     Active Substance: AZOSEMIDE
     Dosage: 90 MG, 1X/DAY
     Route: 048
     Dates: start: 20140530, end: 20140701
  12. HOCHUEKKITO /07973001/ [Concomitant]
     Active Substance: HERBALS
     Dosage: UNK
     Dates: end: 20140701
  13. LOXOPROFEN [Concomitant]
     Active Substance: LOXOPROFEN
     Dosage: UNK
     Dates: start: 201312
  14. LASIX [Concomitant]
     Active Substance: FUROSEMIDE
     Dosage: UNK
     Dates: start: 201312
  15. SPIRONOLACTONE. [Concomitant]
     Active Substance: SPIRONOLACTONE
     Dosage: UNK
     Dates: start: 201312
  16. WARFARIN [Concomitant]
     Active Substance: WARFARIN
     Dosage: UNK
     Dates: end: 20140702
  17. LYRICA [Suspect]
     Active Substance: PREGABALIN
     Dosage: 25 MG, 2X/DAY
     Route: 048
     Dates: start: 20140122, end: 20140701
  18. MAGLAX [Concomitant]
     Active Substance: MAGNESIUM OXIDE
     Dosage: UNK
     Dates: end: 20140701

REACTIONS (4)
  - Tubulointerstitial nephritis [Recovered/Resolved]
  - Inflammation [Unknown]
  - Pyrexia [Unknown]
  - Liver disorder [Unknown]

NARRATIVE: CASE EVENT DATE: 20140611
